FAERS Safety Report 19935870 (Version 3)
Quarter: 2022Q1

REPORT INFORMATION
  Report Type: Spontaneous
  Country: US (occurrence: US)
  Receive Date: 20211008
  Receipt Date: 20220301
  Transmission Date: 20220423
  Serious: Yes (Other)
  Sender: FDA-Public Use
  Company Number: US-PFIZER INC-2021591997

PATIENT
  Age: 61 Year
  Sex: Female

DRUGS (2)
  1. IBRANCE [Suspect]
     Active Substance: PALBOCICLIB
     Indication: Bone cancer
     Dosage: 125 MG
     Dates: start: 20200930
  2. IBRANCE [Suspect]
     Active Substance: PALBOCICLIB
     Dosage: 100 MG
     Dates: start: 20210929

REACTIONS (10)
  - COVID-19 pneumonia [Unknown]
  - Constipation [Unknown]
  - Fatigue [Unknown]
  - Arthralgia [Unknown]
  - Decreased activity [Unknown]
  - Vertigo [Unknown]
  - White blood cell count abnormal [Unknown]
  - Stress [Unknown]
  - Gait disturbance [Unknown]
  - Off label use [Unknown]

NARRATIVE: CASE EVENT DATE: 20210923
